FAERS Safety Report 7513533-6 (Version None)
Quarter: 2011Q2

REPORT INFORMATION
  Report Type: 
  Country: None (occurrence: None)
  Receive Date: 20110531
  Receipt Date: 20110517
  Transmission Date: 20111010
  Serious: Yes (Hospitalization, Other)
  Sender: FDA-Public Use
  Company Number: BR-BAYER-201019485LA

PATIENT
  Age: 21 Year
  Sex: Female
  Weight: 64 kg

DRUGS (8)
  1. YASMIN [Suspect]
     Indication: MENSTRUAL CYCLE MANAGEMENT
     Dosage: 1 DF, QD
     Route: 048
     Dates: start: 20100915, end: 20110201
  2. YASMIN [Suspect]
     Indication: POLYCYSTIC OVARIES
     Dosage: 1 DF, QD
     Route: 048
     Dates: start: 20110330
  3. PHENOBARBITAL TAB [Concomitant]
     Indication: CONVULSION
     Dosage: 100 MG, QD
     Dates: start: 20020101, end: 20100101
  4. PHENOBARBITAL TAB [Concomitant]
     Dosage: 100 MG, BID
     Route: 048
     Dates: start: 19950101
  5. PHENOBARBITAL TAB [Concomitant]
     Dosage: 200 MG, QD
     Dates: start: 20101201
  6. TOPIRAMATE [Concomitant]
     Indication: CONVULSION
     Dosage: 50 MG, BID
     Route: 048
     Dates: start: 20100601
  7. TOPIRAMATE [Concomitant]
     Dosage: 50 MG, BID
     Route: 048
     Dates: start: 20101201
  8. PHENOBARBITAL TAB [Concomitant]
     Indication: CONVERSION DISORDER
     Dosage: 100 MG, QD
     Route: 048
     Dates: start: 20100101

REACTIONS (17)
  - MENSTRUATION DELAYED [None]
  - NECK PAIN [None]
  - ABNORMAL WITHDRAWAL BLEEDING [None]
  - PELVIC PAIN [None]
  - VOMITING [None]
  - AMENORRHOEA [None]
  - ABDOMINAL PAIN [None]
  - ABDOMINAL RIGIDITY [None]
  - BLOOD PRESSURE DECREASED [None]
  - OVARIAN CYST [None]
  - VAGINAL HAEMORRHAGE [None]
  - RENAL PAIN [None]
  - NAUSEA [None]
  - ABDOMINAL PAIN LOWER [None]
  - METRORRHAGIA [None]
  - MENORRHAGIA [None]
  - DIARRHOEA [None]
